FAERS Safety Report 4949207-5 (Version None)
Quarter: 2006Q1

REPORT INFORMATION
  Report Type: 
  Country: None (occurrence: None)
  Receive Date: 20060321
  Receipt Date: 20051116
  Transmission Date: 20060701
  Serious: Yes (Death, Hospitalization)
  Sender: FDA-Public Use
  Company Number: GR-ROCHE-425046

PATIENT
  Age: 72 Year
  Sex: Female

DRUGS (4)
  1. CAPECITABINE [Suspect]
     Indication: BREAST CANCER
     Route: 048
     Dates: start: 20051003, end: 20051029
  2. IXABEPILONE [Suspect]
     Indication: BREAST CANCER
     Route: 042
     Dates: start: 20051003, end: 20051024
  3. MEDROL [Concomitant]
     Dosage: DOSE REPORTED AS 16 MG/DL
     Dates: start: 20050915, end: 20051101
  4. LEVOTHYROXINE SODIUM [Concomitant]
     Dosage: TRADE NAME REPORTED AS THYROMONE
     Dates: start: 20020215, end: 20051101

REACTIONS (6)
  - AGRANULOCYTOSIS [None]
  - BONE MARROW FAILURE [None]
  - BONE MARROW TOXICITY [None]
  - CARDIO-RESPIRATORY ARREST [None]
  - FEBRILE NEUTROPENIA [None]
  - HAEMORRHAGE [None]
